FAERS Safety Report 10015658 (Version 3)
Quarter: 2014Q2

REPORT INFORMATION
  Report Type: Spontaneous
  Country: US (occurrence: US)
  Receive Date: 20140317
  Receipt Date: 20140422
  Transmission Date: 20141212
  Serious: No
  Sender: FDA-Public Use
  Company Number: US-PFIZER INC-2014076614

PATIENT
  Age: 84 Year
  Sex: Female
  Weight: 47.17 kg

DRUGS (11)
  1. GABAPENTIN [Suspect]
     Indication: DIABETIC NEUROPATHY
     Dosage: 300 MG, 3X/DAY
     Dates: start: 201209
  2. GABAPENTIN [Suspect]
     Dosage: 300 MG, 3X/DAY
  3. ALTACE [Concomitant]
     Indication: CARDIAC DISORDER
     Dosage: 5 MG, DAILY
  4. JANUVIA [Concomitant]
     Indication: DIABETES MELLITUS
     Dosage: 100 MG, DAILY
  5. METFORMIN [Concomitant]
     Indication: DIABETES MELLITUS
     Dosage: 1000 MG, 2X/DAY
  6. MYRBETRIQ [Concomitant]
     Indication: BLADDER DISORDER
     Dosage: 25 MG, DAILY
  7. NIACIN [Concomitant]
     Indication: BLOOD CHOLESTEROL ABNORMAL
     Dosage: 1000 MG, DAILY
  8. PLAVIX [Concomitant]
     Indication: THROMBOSIS
     Dosage: 75 MG, DAILY
  9. PRAVACHOL [Concomitant]
     Indication: BLOOD CHOLESTEROL ABNORMAL
     Dosage: 20 MG, DAILY
  10. SPIRONOLACTONE [Concomitant]
     Dosage: 25 MG, DAILY
  11. WARFARIN [Concomitant]
     Indication: THROMBOSIS
     Dosage: 4 MG, DAILY

REACTIONS (2)
  - Drug ineffective [Unknown]
  - Neuropathy peripheral [Unknown]
